FAERS Safety Report 21756324 (Version 1)
Quarter: 2022Q4

REPORT INFORMATION
  Report Type: Spontaneous
  Country: US (occurrence: US)
  Receive Date: 20221220
  Receipt Date: 20221220
  Transmission Date: 20230113
  Serious: Yes (Other)
  Sender: FDA-Public Use
  Company Number: US-GILEAD-2022-0610026

PATIENT
  Age: 30 Year
  Sex: Female

DRUGS (1)
  1. YESCARTA [Suspect]
     Active Substance: AXICABTAGENE CILOLEUCEL
     Indication: Diffuse large B-cell lymphoma
     Dosage: UNK
     Route: 065

REACTIONS (12)
  - Malignant neoplasm progression [Unknown]
  - Cytokine release syndrome [Unknown]
  - Dialysis [Unknown]
  - Neurotoxicity [Unknown]
  - Encephalopathy [Unknown]
  - Renal failure [Unknown]
  - Respiratory failure [Unknown]
  - Central nervous system lesion [Unknown]
  - Somnolence [Unknown]
  - Confusional state [Unknown]
  - Hypercalcaemia [Unknown]
  - Pulmonary mass [Unknown]

NARRATIVE: CASE EVENT DATE: 20180726
